FAERS Safety Report 8268474-6 (Version None)
Quarter: 2012Q2

REPORT INFORMATION
  Report Type: 
  Country: None (occurrence: None)
  Receive Date: 20120409
  Receipt Date: 20120404
  Transmission Date: 20120825
  Serious: Yes (Life-Threatening)
  Sender: FDA-Public Use
  Company Number: PHEH2011US012178

PATIENT
  Sex: Male

DRUGS (3)
  1. GABAPENTIN [Concomitant]
     Dosage: 300 MG, BID
     Dates: start: 20111001
  2. WELLBUTRIN [Concomitant]
     Dosage: 300 MG, QD
  3. GILENYA [Suspect]
     Dosage: 0.5 MG, QD
     Dates: start: 20111215, end: 20111219

REACTIONS (6)
  - PHARYNGEAL OEDEMA [None]
  - DYSPHAGIA [None]
  - LYMPHADENOPATHY [None]
  - DYSPNOEA [None]
  - OBSTRUCTIVE AIRWAYS DISORDER [None]
  - DRUG HYPERSENSITIVITY [None]
